FAERS Safety Report 11217688 (Version 1)
Quarter: 2015Q2

REPORT INFORMATION
  Report Type: Spontaneous
  Country: FR (occurrence: FR)
  Receive Date: 20150625
  Receipt Date: 20150625
  Transmission Date: 20150821
  Serious: Yes (Hospitalization, Other)
  Sender: FDA-Public Use
  Company Number: FR-009507513-1506FRA009811

PATIENT
  Age: 69 Year
  Sex: Male
  Weight: 82 kg

DRUGS (4)
  1. TEMODAL [Concomitant]
     Active Substance: TEMOZOLOMIDE
     Dosage: UNK
     Route: 048
     Dates: end: 201506
  2. PROGLICEM [Suspect]
     Active Substance: DIAZOXIDE
     Indication: INSULINOMA
     Dosage: UNK
     Route: 048
  3. AVASTIN [Concomitant]
     Active Substance: BEVACIZUMAB
     Dosage: UNK
     Dates: end: 201506
  4. SIGNIFOR [Concomitant]
     Active Substance: PASIREOTIDE
     Dosage: UNK
     Dates: end: 201506

REACTIONS (4)
  - Renal failure [Unknown]
  - Overdose [Unknown]
  - Metabolic disorder [Unknown]
  - Ileus [Unknown]

NARRATIVE: CASE EVENT DATE: 201506
